FAERS Safety Report 8542562-9 (Version None)
Quarter: 2012Q3

REPORT INFORMATION
  Report Type: 
  Country: None (occurrence: None)
  Receive Date: 20120726
  Receipt Date: 20120720
  Transmission Date: 20120928
  Serious: Yes (Congenital Anomaly)
  Sender: FDA-Public Use
  Company Number: US-GILEAD-2012-0058364

PATIENT

DRUGS (3)
  1. EMTRICITABINE/TENOFOVIR DISOPROXIL FUMARATE [Suspect]
     Indication: HIV INFECTION
     Dosage: 1 DF, QD
     Route: 064
  2. LOPINAVIR/RITONAVIR [Suspect]
     Dosage: 3 DF, QD
     Route: 048
     Dates: start: 20120510
  3. LOPINAVIR/RITONAVIR [Suspect]
     Indication: HIV INFECTION
     Dosage: 2 DF, QD
     Route: 064
     Dates: end: 20120510

REACTIONS (3)
  - ULTRASOUND SCAN ABNORMAL [None]
  - ULTRASOUND ANTENATAL SCREEN ABNORMAL [None]
  - MATERNAL DRUGS AFFECTING FOETUS [None]
